FAERS Safety Report 6647157-X (Version None)
Quarter: 2010Q1

REPORT INFORMATION
  Report Type: 
  Country: None (occurrence: None)
  Receive Date: 20100323
  Receipt Date: 20100318
  Transmission Date: 20100710
  Serious: Yes (Death)
  Sender: FDA-Public Use
  Company Number: PHEH2009US16203

PATIENT
  Sex: Female

DRUGS (7)
  1. TASIGNA [Suspect]
     Indication: GASTROINTESTINAL STROMAL TUMOUR
     Dosage: 400 MG, BID
     Route: 048
     Dates: start: 20090930
  2. MIRALAX [Concomitant]
  3. REGLAN [Concomitant]
  4. MULTIVITAMIN ^LAPPE^ [Concomitant]
     Dosage: UNK, PRN
  5. ZOFRAN [Concomitant]
     Dosage: UNK, PRN
  6. COMPAZINE [Concomitant]
  7. MS CONTIN [Concomitant]

REACTIONS (14)
  - ABDOMINAL DISTENSION [None]
  - ABDOMINAL PAIN [None]
  - ABDOMINAL TENDERNESS [None]
  - ASTHENIA [None]
  - BLOOD PRESSURE DECREASED [None]
  - BREATH SOUNDS ABNORMAL [None]
  - GASTROINTESTINAL STROMAL TUMOUR [None]
  - HEPATOMEGALY [None]
  - HYPOPHAGIA [None]
  - MALIGNANT NEOPLASM PROGRESSION [None]
  - NAUSEA [None]
  - OEDEMA PERIPHERAL [None]
  - PAIN [None]
  - TACHYCARDIA [None]
